FAERS Safety Report 5572625-1 (Version None)
Quarter: 2007Q4

REPORT INFORMATION
  Report Type: 
  Country: None (occurrence: None)
  Receive Date: 20071130
  Receipt Date: 20061025
  Transmission Date: 20080405
  Serious: Yes (Other)
  Sender: FDA-Public Use
  Company Number: WAES 0602USA02402

PATIENT
  Age: 71 Year
  Sex: Female
  Weight: 55.3388 kg

DRUGS (9)
  1. FOSAMAX [Suspect]
     Indication: OSTEOPOROSIS
     Dosage: PO
     Route: 048
     Dates: start: 20030101, end: 20051030
  2. COUMADIN [Concomitant]
  3. DEPAKOTE [Concomitant]
  4. DILANTIN [Concomitant]
  5. DIOVAN [Concomitant]
  6. PRAVACHOL [Concomitant]
  7. ASPIRIN [Concomitant]
  8. DIGOXIN [Concomitant]
  9. METOPROLOL TARTRATE [Concomitant]

REACTIONS (2)
  - OSTEOMYELITIS [None]
  - OSTEONECROSIS [None]
